FAERS Safety Report 11363270 (Version 1)
Quarter: 2015Q3

REPORT INFORMATION
  Report Type: Spontaneous
  Country: US (occurrence: None)
  Receive Date: 20150810
  Receipt Date: 20150810
  Transmission Date: 20151125
  Serious: Yes (Hospitalization)
  Sender: FDA-Public Use
  Company Number: None

PATIENT
  Age: 4 Year
  Sex: Female
  Weight: 17.1 kg

DRUGS (9)
  1. ONCASPAR [Suspect]
     Active Substance: PEGASPARGASE
     Dates: end: 20150316
  2. THIOGUANINE (6-TG) [Suspect]
     Active Substance: THIOGUANINE
     Dates: end: 20150315
  3. CYCLOPHOSPHAMIDE. [Suspect]
     Active Substance: CYCLOPHOSPHAMIDE
     Dates: end: 20150302
  4. METHOTREXATE [Suspect]
     Active Substance: METHOTREXATE
     Dosage: 95 MG, WAS HELD DUE TO THE EVENT ON 7/20/15 AND RESUMED ON 7/24/15 AT 50% DOSING
     Dates: end: 20150720
  5. PREDNISONE. [Suspect]
     Active Substance: PREDNISONE
     Dates: end: 20150710
  6. CYTARABINE. [Suspect]
     Active Substance: CYTARABINE
     Route: 037
     Dates: end: 20140728
  7. MERCAPTOPURINE. [Suspect]
     Active Substance: MERCAPTOPURINE
     Dosage: 700 MG, WAS HELD DUE TO THE EVENT ON 7-20-15 AND RESUMED ON 7/24/15 AT 50% DOSING
     Dates: end: 20150720
  8. VINCRISTINE SULFATE. [Suspect]
     Active Substance: VINCRISTINE SULFATE
     Dates: end: 20150706
  9. DOXORUBICIN HYDROCHLORIDE. [Suspect]
     Active Substance: DOXORUBICIN HYDROCHLORIDE
     Dates: end: 20150209

REACTIONS (13)
  - Neutropenia [None]
  - Dyspnoea [None]
  - Tachypnoea [None]
  - Obliterative bronchiolitis [None]
  - Wheezing [None]
  - Respiratory distress [None]
  - Adenovirus test positive [None]
  - Upper respiratory tract infection [None]
  - Heart rate increased [None]
  - Pyrexia [None]
  - Rhinovirus infection [None]
  - Cough [None]
  - Pneumonia viral [None]

NARRATIVE: CASE EVENT DATE: 20150728
